FAERS Safety Report 8790880 (Version 1)
Quarter: 2012Q4

REPORT INFORMATION
  Report Type: 
  Country: US (occurrence: None)
  Receive Date: 20120913
  Receipt Date: 20120913
  Transmission Date: 20130627
  Serious: Yes (Hospitalization)
  Sender: FDA-Public Use
  Company Number: None

PATIENT
  Sex: Female
  Weight: 90 kg

DRUGS (3)
  1. CARBOPLATIN [Suspect]
     Dates: end: 20110822
  2. DOXORUBICIN HYDROCHLORIDE [Suspect]
     Dates: end: 20111031
  3. PACLITAXEL (TAXOL) [Suspect]
     Dates: end: 20110906

REACTIONS (2)
  - Febrile neutropenia [None]
  - Lung infection [None]
